FAERS Safety Report 21703324 (Version 1)
Quarter: 2022Q4

REPORT INFORMATION
  Report Type: Spontaneous
  Country: FR (occurrence: FR)
  Receive Date: 20221209
  Receipt Date: 20221209
  Transmission Date: 20230113
  Serious: Yes (Life-Threatening)
  Sender: FDA-Public Use
  Company Number: FR-AFSSAPS-ST20222321

PATIENT
  Age: 22 Year
  Sex: Male

DRUGS (2)
  1. MORPHINE [Suspect]
     Active Substance: MORPHINE
     Indication: Arthralgia
     Dosage: 14 MILLIGRAM, BOLUS OF 3+3+2+2+2+2 MG
     Route: 040
     Dates: start: 20220919, end: 20220919
  2. METHOXYFLURANE [Suspect]
     Active Substance: METHOXYFLURANE
     Indication: Arthralgia
     Dosage: UNK
     Route: 055
     Dates: start: 20220919, end: 20220919

REACTIONS (3)
  - Respiratory depression [Recovered/Resolved]
  - Miosis [Recovered/Resolved]
  - Oxygen saturation decreased [Recovered/Resolved]

NARRATIVE: CASE EVENT DATE: 20220919
